FAERS Safety Report 4932707-1 (Version None)
Quarter: 2006Q1

REPORT INFORMATION
  Report Type: 
  Country: None (occurrence: None)
  Receive Date: 20060301
  Receipt Date: 20060214
  Transmission Date: 20060701
  Serious: Yes (Hospitalization, Other)
  Sender: FDA-Public Use
  Company Number: US-2005-022289

PATIENT
  Age: 46 Year
  Sex: Female

DRUGS (1)
  1. BETASERON [Suspect]
     Indication: RELAPSING-REMITTING MULTIPLE SCLEROSIS
     Dosage: 8 MIU, EVERY 2D, SUBCUTANEOUS
     Route: 058
     Dates: start: 20050616, end: 20051021

REACTIONS (7)
  - DYSPHAGIA [None]
  - DYSPNOEA [None]
  - FEELING ABNORMAL [None]
  - HYPERSENSITIVITY [None]
  - JAW DISORDER [None]
  - LOCAL SWELLING [None]
  - THROAT TIGHTNESS [None]
